FAERS Safety Report 17951750 (Version 1)
Quarter: 2020Q2

REPORT INFORMATION
  Report Type: Spontaneous
  Country: CN (occurrence: CN)
  Receive Date: 20200626
  Receipt Date: 20200626
  Transmission Date: 20200714
  Serious: Yes (Hospitalization, Other)
  Sender: FDA-Public Use
  Company Number: CN-BRISTOL-MYERS SQUIBB COMPANY-BMS-2020-049545

PATIENT
  Age: 53 Year
  Sex: Male
  Weight: 72.3 kg

DRUGS (4)
  1. LEVOFLOXACIN. [Concomitant]
     Active Substance: LEVOFLOXACIN
     Indication: PRODUCT USED FOR UNKNOWN INDICATION
     Dosage: 200 MILLILITER
     Route: 065
     Dates: start: 20190415, end: 20190421
  2. NIVOLUMAB [Suspect]
     Active Substance: NIVOLUMAB
     Indication: MALIGNANT NEOPLASM OF RENAL PELVIS
     Dosage: UNK
     Route: 065
     Dates: start: 20180530, end: 20190523
  3. METHOXYPHENAMINE [Concomitant]
     Active Substance: METHOXYPHENAMINE
     Indication: PRODUCT USED FOR UNKNOWN INDICATION
     Dosage: 6 GRAIN
     Route: 065
     Dates: start: 20190415, end: 20190421
  4. NIVOLUMAB [Suspect]
     Active Substance: NIVOLUMAB
     Indication: PRODUCT USED FOR UNKNOWN INDICATION
     Dosage: ONCE 240ML, ONCE EVERY 2 WEEEKS
     Route: 065

REACTIONS (12)
  - Blood lactate dehydrogenase increased [Unknown]
  - Proctitis [Unknown]
  - Blood thyroid stimulating hormone increased [Unknown]
  - Blood creatine phosphokinase increased [Unknown]
  - Arthritis [Unknown]
  - Haematochezia [Unknown]
  - Upper respiratory tract infection [Unknown]
  - Rash [Unknown]
  - Amylase increased [Unknown]
  - Myalgia [Unknown]
  - Headache [Unknown]
  - Muscular weakness [Unknown]

NARRATIVE: CASE EVENT DATE: 20180626
